FAERS Safety Report 15388063 (Version 2)
Quarter: 2018Q3

REPORT INFORMATION
  Report Type: Report from Study
  Country: None (occurrence: NZ)
  Receive Date: 20180915
  Receipt Date: 20180917
  Transmission Date: 20181010
  Serious: Yes (Hospitalization)
  Sender: FDA-Public Use
  Company Number: NZ-ABBVIE-18S-118-2477903-00

PATIENT
  Age: 67 Year
  Sex: Male

DRUGS (19)
  1. DUODOPA [Suspect]
     Active Substance: CARBIDOPA\LEVODOPA
     Indication: PRODUCT USED FOR UNKNOWN INDICATION
     Dosage: MD 7.7ML, CR 5.9ML/HR OR 3ML/HR, ED 1.8ML PRN
     Route: 050
     Dates: start: 2009
  2. PROKINEX [Concomitant]
     Indication: VOMITING
     Dosage: 1 TABLET UP TO THREE TIMES DAILY WHEN REQUIRED PRN
  3. GABAPENTIN. [Concomitant]
     Active Substance: GABAPENTIN
     Indication: PRODUCT USED FOR UNKNOWN INDICATION
  4. FORTISIP [Concomitant]
     Active Substance: CARBOHYDRATES\FATTY ACIDS\MINERALS\PROTEIN\VITAMINS
     Indication: PRODUCT USED FOR UNKNOWN INDICATION
     Dosage: TAKE AS DIRECTED
  5. LORAFIX [Concomitant]
     Indication: PRODUCT USED FOR UNKNOWN INDICATION
  6. FENTANYL. [Concomitant]
     Active Substance: FENTANYL
     Indication: PRODUCT USED FOR UNKNOWN INDICATION
     Dosage: 12.5 MICROGRAM/HOUR (2.1MG/PATCH)?1 AND A HALF PATCHES EVERY 3 DAYS
  7. FENTANYL. [Concomitant]
     Active Substance: FENTANYL
     Dosage: 12.5 MICROGRAM/HOUR (2.1MG/PATCH)?1 PATCH EVERY 3 DAYS
  8. CELECOXIB. [Concomitant]
     Active Substance: CELECOXIB
     Indication: PRODUCT USED FOR UNKNOWN INDICATION
     Dosage: AT NIGHT
  9. SORBOLENE + GLYCERINE [Concomitant]
     Indication: DRY SKIN
     Dosage: CETOMACROGOL AQUEOUS CREAM 90%, GLYCEROL 10%, FREQUENTLY TO SKIN PRN
  10. APO?PYRIDOXINE [Concomitant]
     Indication: PRODUCT USED FOR UNKNOWN INDICATION
     Dosage: HALF A TABLET ONCE DAILY
  11. MICREME H [Concomitant]
     Indication: PRODUCT USED FOR UNKNOWN INDICATION
     Dosage: AROUND PEG SITE, MICONAZOLE NITRATE 2%, HYDROCORTISONE 1%
  12. PROKINEX [Concomitant]
     Indication: NAUSEA
     Dosage: 1 TABLET UP TO TWICE DAILY WHEN REQUIRED PRN
  13. GABAPENTIN. [Concomitant]
     Active Substance: GABAPENTIN
     Route: 048
  14. MYCONAIL [Concomitant]
     Indication: PRODUCT USED FOR UNKNOWN INDICATION
     Dosage: 5% (50MG/ML) APPLICATION APPLY TO NAILS
  15. SINEMET [Concomitant]
     Active Substance: CARBIDOPA\LEVODOPA
     Indication: PRODUCT USED FOR UNKNOWN INDICATION
     Dosage: LEVODOPA 100MG + CARBIDOPA ANHYDROUS 25MG, 2 TABLETS UP TO BID
  16. RISEDRONATE SODIUM. [Concomitant]
     Active Substance: RISEDRONATE SODIUM
     Indication: PRODUCT USED FOR UNKNOWN INDICATION
     Dosage: ON SATURDAY
  17. DAIVOBET [Concomitant]
     Active Substance: BETAMETHASONE DIPROPIONATE\CALCIPOTRIENE
     Indication: PRODUCT USED FOR UNKNOWN INDICATION
     Dosage: CALCIPOTRIOL 0.005%, BETAMETHASONE 0.05%, AT NIGHT TO SCALP
  18. LAEVOLAC [Concomitant]
     Active Substance: LACTULOSE
     Indication: CONSTIPATION
     Dosage: LACTULOSE 3.34G/5ML, UP TO TWICE DAILY PRN
     Route: 048
  19. PARACETAMOL [Concomitant]
     Active Substance: ACETAMINOPHEN
     Indication: PRODUCT USED FOR UNKNOWN INDICATION
     Dosage: 2 TABLETS 4 TIMES DAILY

REACTIONS (7)
  - Vomiting [Unknown]
  - Constipation [Recovered/Resolved]
  - White blood cell count increased [Recovered/Resolved]
  - Urinary retention [Recovered/Resolved]
  - Arthralgia [Unknown]
  - Thrombophlebitis [Recovering/Resolving]
  - Rash [Unknown]

NARRATIVE: CASE EVENT DATE: 2018
